FAERS Safety Report 11162200 (Version 2)
Quarter: 2015Q2

REPORT INFORMATION
  Report Type: Spontaneous
  Country: US (occurrence: None)
  Receive Date: 20150602
  Receipt Date: 20150615
  Transmission Date: 20150821
  Serious: Yes (Other)
  Sender: FDA-Public Use
  Company Number: FK201502507

PATIENT
  Age: 40 Year
  Sex: Male

DRUGS (8)
  1. PREDNISONE (PREDNISONE) (PREDNISONE) [Suspect]
     Active Substance: PREDNISONE
     Indication: PLASMABLASTIC LYMPHOMA
     Dosage: ON DAYS 1, 4, 8 AND 11, 21 DAY
  2. BORTEZOMIB (BORTEZOMIB) [Suspect]
     Active Substance: BORTEZOMIB
     Indication: PLASMABLASTIC LYMPHOMA
     Dosage: 1.3 MG/M**2, ON DAYS 1, 4, 8 AND 11
     Route: 058
  3. CYTARABINE (CYTARABINE) [Concomitant]
     Active Substance: CYTARABINE
  4. DOXORUBICIN (MANUFACTURER UNKNOWN) (DOXORUBICIN HYDROCHLORIDE) (DOXORUBICIN HYDROCHLORIDE) [Suspect]
     Active Substance: DOXORUBICIN
     Indication: PLASMABLASTIC LYMPHOMA
     Dosage: ON DAYS 1, 4, 8 AND 11, 21 DAY
  5. CYCLOPHOSPHAMIDE (CYCLOPHOSPHAMIDE) (CYCLOPHOSPHAMIDE) [Suspect]
     Active Substance: CYCLOPHOSPHAMIDE
     Indication: PLASMABLASTIC LYMPHOMA
     Dosage: ON DAYS 1, 4, 8 AND 11, 21 DAY
  6. VINCRISTINE (VINCRISTINE) (VINCRISTINE) [Suspect]
     Active Substance: VINCRISTINE
     Indication: PLASMABLASTIC LYMPHOMA
     Dosage: ON DAYS 1, 4, 8 AND 11, 21 DAY
  7. PEGFILGRASTIM [Concomitant]
     Active Substance: PEGFILGRASTIM
  8. ETOPOSIDE (MANUFACTURER UNKNOWN) (ETOPOSIDE) (ETOPOSIDE) [Suspect]
     Active Substance: ETOPOSIDE
     Indication: PLASMABLASTIC LYMPHOMA
     Dosage: ON DAYS 1, 4, 8 AND 11, 21 DAY

REACTIONS (3)
  - Herpes zoster [None]
  - Infection reactivation [None]
  - Thrombocytopenia [None]
